FAERS Safety Report 9758523 (Version 1)
Quarter: 2013Q4

REPORT INFORMATION
  Report Type: Spontaneous
  Country: US (occurrence: None)
  Receive Date: 20131216
  Receipt Date: 20131216
  Transmission Date: 20140711
  Serious: No
  Sender: FDA-Public Use
  Company Number: CABO-13002694

PATIENT
  Age: 41 Year
  Sex: Female

DRUGS (2)
  1. COMETRIQ (CABOZANTINIB) CAPSULE [Suspect]
     Indication: CONGENITAL PIGMENTATION DISORDER
     Dosage: 140 MG, QD, ORAL
  2. COMETRIQ (CABOZANTINIB) CAPSULE [Suspect]
     Indication: DIFFUSE CUTANEOUS MASTOCYTOSIS
     Dosage: 140 MG, QD, ORAL

REACTIONS (3)
  - Pallor [None]
  - Stomatitis [None]
  - Fatigue [None]
